FAERS Safety Report 24200561 (Version 2)
Quarter: 2024Q3

REPORT INFORMATION
  Report Type: Spontaneous
  Country: US (occurrence: US)
  Receive Date: 20240812
  Receipt Date: 20240820
  Transmission Date: 20241017
  Serious: No
  Sender: AMGEN
  Company Number: US-AMGEN-USASP2024159291

PATIENT
  Age: 31 Year
  Sex: Female

DRUGS (4)
  1. MVASI [Suspect]
     Active Substance: BEVACIZUMAB-AWWB
     Indication: Metastases to central nervous system
     Dosage: 100MG X 3 VIALS(DOSE: 1839MG)
     Route: 042
  2. MVASI [Suspect]
     Active Substance: BEVACIZUMAB-AWWB
     Indication: Hypomagnesaemia
     Dosage: 400MG X 2 VIALS(DOSE: 1839MG)
     Route: 042
  3. MVASI [Suspect]
     Active Substance: BEVACIZUMAB-AWWB
     Indication: Cervix carcinoma
     Dosage: 400MG X 2 VIALS (DOSE: 1839MG)
     Route: 042
  4. MVASI [Suspect]
     Active Substance: BEVACIZUMAB-AWWB
     Dosage: (DOSE: 1839MG) EVERY 21 DAYS
     Route: 042

REACTIONS (2)
  - Product dispensing error [Unknown]
  - Off label use [Unknown]

NARRATIVE: CASE EVENT DATE: 20240802
